FAERS Safety Report 10146034 (Version 1)
Quarter: 2014Q2

REPORT INFORMATION
  Report Type: Spontaneous
  Country: CA (occurrence: CA)
  Receive Date: 20140501
  Receipt Date: 20140501
  Transmission Date: 20141212
  Serious: Yes (Other)
  Sender: FDA-Public Use
  Company Number: CA-BAYER-2014-061165

PATIENT
  Age: 34 Year
  Sex: Female
  Weight: 71 kg

DRUGS (3)
  1. GADOVIST [Suspect]
     Indication: NUCLEAR MAGNETIC RESONANCE IMAGING
     Dosage: 7.5 ML, ONCE
     Route: 042
     Dates: start: 20140423, end: 20140423
  2. BENADRYL [Concomitant]
     Indication: ALLERGY PROPHYLAXIS
     Dosage: 50 MG, UNK
     Route: 048
  3. PREDNISONE [Concomitant]
     Indication: ALLERGY PROPHYLAXIS
     Dosage: 50 MG, TID
     Route: 048

REACTIONS (2)
  - Swelling [Recovered/Resolved]
  - Dyspnoea [Recovered/Resolved]
